FAERS Safety Report 12062310 (Version 2)
Quarter: 2016Q2

REPORT INFORMATION
  Report Type: Report from Study
  Country: US (occurrence: US)
  Receive Date: 20160210
  Receipt Date: 20160418
  Transmission Date: 20160815
  Serious: Yes (Hospitalization, Other)
  Sender: FDA-Public Use
  Company Number: US-ALEXION PHARMACEUTICALS INC-A201600633

PATIENT
  Sex: Female

DRUGS (1)
  1. SOLIRIS [Suspect]
     Active Substance: ECULIZUMAB
     Indication: PAROXYSMAL NOCTURNAL HAEMOGLOBINURIA
     Dosage: UNK
     Route: 042

REACTIONS (12)
  - Neutrophil count decreased [Unknown]
  - Swelling [Recovering/Resolving]
  - Myelofibrosis [Unknown]
  - Hypotension [Unknown]
  - Feeding disorder [Unknown]
  - Malaise [Unknown]
  - Bone marrow disorder [Unknown]
  - Fall [Recovered/Resolved]
  - Insomnia [Not Recovered/Not Resolved]
  - Contusion [Unknown]
  - Mood altered [Unknown]
  - Scan bone marrow abnormal [Unknown]
